FAERS Safety Report 12526101 (Version 6)
Quarter: 2016Q3

REPORT INFORMATION
  Report Type: Spontaneous
  Country: US (occurrence: US)
  Receive Date: 20160705
  Receipt Date: 20160923
  Transmission Date: 20161109
  Serious: Yes (Hospitalization)
  Sender: FDA-Public Use
  Company Number: US-PFIZER INC-2016262696

PATIENT
  Age: 67 Year
  Sex: Female
  Weight: 64.44 kg

DRUGS (11)
  1. VITAMIN D [Concomitant]
     Active Substance: CHOLECALCIFEROL
     Dosage: 1000 IU, DAILY (1000 MAX ST)
     Route: 048
     Dates: start: 2012
  2. SERTRALINE HCL [Concomitant]
     Active Substance: SERTRALINE HYDROCHLORIDE
     Dosage: UNK
  3. ZOLOFT [Concomitant]
     Active Substance: SERTRALINE HYDROCHLORIDE
     Dosage: 1 DF, DAILY
     Route: 048
     Dates: start: 2016
  4. SUTENT [Suspect]
     Active Substance: SUNITINIB MALATE
     Indication: METASTATIC RENAL CELL CARCINOMA
     Dosage: 50 MG, DAILY  (TAKE 1 CAPSULE (50MG) BY MOUTH)
     Route: 048
     Dates: start: 20160524
  5. BIO-MULTI [Concomitant]
     Dosage: UNK
     Dates: start: 2012
  6. LISINOPRIL. [Concomitant]
     Active Substance: LISINOPRIL
     Dosage: UNK
     Dates: start: 2014
  7. OSTEO B II [Concomitant]
     Dosage: 4 DF, AS NEEDED (2 IN AM 2 AT HS)
     Route: 048
     Dates: end: 201605
  8. ZESTRIL [Concomitant]
     Active Substance: LISINOPRIL
     Dosage: 5 MG, DAILY
     Route: 048
  9. SUTENT [Suspect]
     Active Substance: SUNITINIB MALATE
     Dosage: 50 MG, CYCLIC (28 DAYS ON/14 DAYS OFF)
     Route: 048
     Dates: start: 201606, end: 20160622
  10. FLAXSEED [Concomitant]
     Active Substance: FLAX SEED
     Dosage: 1000 MG, DAILY
     Route: 048
     Dates: start: 2012
  11. LINSEED OIL [Concomitant]
     Active Substance: LINSEED OIL
     Dosage: 1000 MG, DAILY
     Route: 048

REACTIONS (18)
  - Ocular icterus [Recovered/Resolved]
  - Limb mass [Recovered/Resolved]
  - Vulvovaginal pruritus [Unknown]
  - Dry mouth [Recovered/Resolved]
  - Gingival pain [Unknown]
  - Gingival pain [Recovered/Resolved]
  - Diarrhoea [Unknown]
  - Faeces discoloured [Unknown]
  - Nausea [Unknown]
  - Asthenia [Recovered/Resolved]
  - Musculoskeletal pain [Unknown]
  - Fatigue [Recovered/Resolved]
  - Hepatic enzyme increased [Recovered/Resolved]
  - Blood creatinine increased [Recovered/Resolved]
  - Vulvovaginal burning sensation [Unknown]
  - Erythema [Unknown]
  - Malaise [Recovered/Resolved]
  - Abdominal pain upper [Unknown]
